FAERS Safety Report 14211616 (Version 7)
Quarter: 2018Q2

REPORT INFORMATION
  Report Type: Spontaneous
  Country: IT (occurrence: IT)
  Receive Date: 20171121
  Receipt Date: 20180627
  Transmission Date: 20180711
  Serious: Yes (Hospitalization, Other)
  Sender: FDA-Public Use
  Company Number: IT-MYLANLABS-2017M1073549

PATIENT
  Age: 41 Year
  Sex: Female

DRUGS (10)
  1. ESTRADIOL. [Suspect]
     Active Substance: ESTRADIOL
     Dosage: GEL FORMULATION
     Route: 062
  2. ESTRADIOL. [Suspect]
     Active Substance: ESTRADIOL
     Indication: TRANSGENDER HORMONAL THERAPY
     Dosage: 2 MG, QD
     Route: 062
  3. ESTRADIOL. [Suspect]
     Active Substance: ESTRADIOL
     Dosage: GEL FORMULATION
     Route: 062
  4. CYPROTERONE ACETATE [Suspect]
     Active Substance: CYPROTERONE ACETATE
     Indication: FEMINISATION ACQUIRED
     Dosage: 50 MG, QD
     Route: 009
  5. ESTRADIOL. [Suspect]
     Active Substance: ESTRADIOL
     Dosage: GEL FORMULATION
     Route: 062
  6. ESTRADIOL. [Suspect]
     Active Substance: ESTRADIOL
     Dosage: 1 MG, QD
     Route: 062
  7. LEUPRORELIN ACETATE [Suspect]
     Active Substance: LEUPROLIDE ACETATE
     Indication: FEMINISATION ACQUIRED
     Dosage: 3.75 MG, MONTHLY
  8. LEUPRORELIN ACETATE [Suspect]
     Active Substance: LEUPROLIDE ACETATE
     Indication: TRANSGENDER HORMONAL THERAPY
  9. ESTRADIOL. [Suspect]
     Active Substance: ESTRADIOL
     Indication: FEMINISATION ACQUIRED
     Dosage: 3 MG, QD
     Route: 062
  10. CYPROTERONE ACETATE [Suspect]
     Active Substance: CYPROTERONE ACETATE
     Indication: TRANSGENDER HORMONAL THERAPY
     Route: 065

REACTIONS (2)
  - Meningioma [Recovered/Resolved]
  - Off label use [Unknown]
